FAERS Safety Report 18329845 (Version 2)
Quarter: 2021Q2

REPORT INFORMATION
  Report Type: Spontaneous
  Country: US (occurrence: US)
  Receive Date: 20200930
  Receipt Date: 20210421
  Transmission Date: 20210717
  Serious: No
  Sender: FDA-Public Use
  Company Number: US-PFIZER INC-2020039806

PATIENT
  Age: 23 Month
  Sex: Female
  Weight: 9.75 kg

DRUGS (1)
  1. GENOTROPIN [Suspect]
     Active Substance: SOMATROPIN
     Indication: GROWTH HORMONE DEFICIENCY
     Dosage: UNK, 1X/DAY (0.3 ONCE A DAY)
     Route: 058
     Dates: start: 2019

REACTIONS (2)
  - Device use error [Unknown]
  - Drug dose omission by device [Unknown]
